FAERS Safety Report 9306715 (Version 3)
Quarter: 2013Q2

REPORT INFORMATION
  Report Type: Report from Study
  Country: DE (occurrence: JP)
  Receive Date: 20130523
  Receipt Date: 20130618
  Transmission Date: 20140414
  Serious: Yes (Other)
  Sender: FDA-Public Use
  Company Number: JP-FRI-1000045276

PATIENT
  Sex: Female

DRUGS (7)
  1. MEMANTINE (OPEN-LABEL) [Suspect]
     Indication: DEMENTIA ALZHEIMER^S TYPE
     Dosage: 5 MILLIGRAM
     Route: 048
     Dates: start: 20121102, end: 20121108
  2. MEMANTINE (OPEN-LABEL) [Suspect]
     Dosage: 10 MILLIGRAM
     Route: 048
     Dates: start: 20121109, end: 20121115
  3. MEMANTINE (OPEN-LABEL) [Suspect]
     Dosage: 15 MILLIGRAM
     Route: 048
     Dates: start: 20121116, end: 20121122
  4. MEMANTINE (OPEN-LABEL) [Suspect]
     Dosage: 20 MILLIGRAM
     Route: 048
     Dates: start: 20121123, end: 20130123
  5. AMLODIPINE [Concomitant]
     Route: 048
     Dates: start: 20121102
  6. PRAVASTATIN SODIUM [Concomitant]
     Route: 048
     Dates: start: 20121102
  7. ETISEDAN [Concomitant]
     Route: 048
     Dates: start: 20121109

REACTIONS (1)
  - Speech disorder [Recovered/Resolved]
